FAERS Safety Report 6897011-3 (Version None)
Quarter: 2010Q3

REPORT INFORMATION
  Report Type: 
  Country: None (occurrence: None)
  Receive Date: 20100802
  Receipt Date: 20070319
  Transmission Date: 20110219
  Serious: Yes (Other)
  Sender: FDA-Public Use
  Company Number: US-PFIZER INC-2007022988

PATIENT
  Sex: Female
  Weight: 69.4 kg

DRUGS (5)
  1. LYRICA [Suspect]
     Indication: NEURALGIA
     Dates: start: 20070314, end: 20070315
  2. LUNESTA [Concomitant]
     Indication: INSOMNIA
  3. ALTACE [Concomitant]
     Indication: HYPERTENSION
  4. LIPITOR [Concomitant]
     Indication: HYPERCHOLESTEROLAEMIA
     Dates: start: 20000101
  5. TIAZAC [Concomitant]
     Indication: HYPERTENSION

REACTIONS (6)
  - COLD SWEAT [None]
  - DIZZINESS [None]
  - FEELING DRUNK [None]
  - GAIT DISTURBANCE [None]
  - MALAISE [None]
  - POLLAKIURIA [None]
